FAERS Safety Report 4684301-8 (Version None)
Quarter: 2005Q2

REPORT INFORMATION
  Report Type: 
  Country: None (occurrence: None)
  Receive Date: 20050607
  Receipt Date: 20041220
  Transmission Date: 20051028
  Serious: Yes (Hospitalization)
  Sender: FDA-Public Use
  Company Number: 2004AP06371

PATIENT
  Age: 25292 Day
  Sex: Female
  Weight: 38 kg

DRUGS (27)
  1. IRESSA [Suspect]
     Indication: NON-SMALL CELL LUNG CANCER
     Dosage: DOSE OMITTED ON 09, 11 AND 13 DECEMBER 2004
     Route: 048
     Dates: start: 20041020, end: 20041214
  2. IRESSA [Suspect]
     Indication: LUNG ADENOCARCINOMA
     Dosage: DOSE OMITTED ON 09, 11 AND 13 DECEMBER 2004
     Route: 048
     Dates: start: 20041020, end: 20041214
  3. IRESSA [Suspect]
     Route: 048
     Dates: start: 20050207
  4. IRESSA [Suspect]
     Route: 048
     Dates: start: 20050207
  5. DALACIN [Concomitant]
     Indication: ECZEMA
     Route: 061
     Dates: start: 20040101
  6. CONIEL [Concomitant]
     Indication: HYPERTENSION
     Route: 048
     Dates: start: 20041020
  7. MEVALOTIN [Concomitant]
     Indication: HYPERLIPIDAEMIA
     Route: 048
     Dates: start: 20041020
  8. MARZULENE ES [Concomitant]
     Indication: GASTRITIS
     Route: 048
     Dates: start: 20041020
  9. TENORMIN [Concomitant]
     Indication: HYPERTENSION
     Route: 048
     Dates: start: 20041020
  10. BEPRICOR [Concomitant]
     Indication: EXTRASYSTOLES
     Route: 048
     Dates: start: 20041020
  11. BROCIN CODEINE [Concomitant]
     Indication: COUGH
     Route: 048
     Dates: start: 20041020
  12. KEIMEI-GASIN-SAN [Concomitant]
     Indication: STOMACH DISCOMFORT
     Route: 048
     Dates: start: 20041213, end: 20041213
  13. TERRA-CORTRIL [Concomitant]
     Indication: ECZEMA
     Route: 061
  14. HIRUDOID [Concomitant]
     Indication: XEROSIS
     Route: 061
  15. RADIATION THERAPY [Concomitant]
     Indication: ADENOCARCINOMA
     Dosage: GAMMA KNIFE THERAPY, 25 GY TO LEFT PARIETAL LOBE
     Dates: start: 20021030, end: 20021030
  16. RADIATION THERAPY [Concomitant]
     Dosage: 23 GY TO LEFT PARIETAL LOBE
     Dates: start: 20031127
  17. PL [Concomitant]
     Indication: COUGH
     Route: 048
     Dates: end: 20041117
  18. MEDICON [Concomitant]
     Indication: COUGH
     Route: 048
  19. MOHRUS TAPE [Concomitant]
     Indication: BACK PAIN
     Route: 061
  20. CISPLATIN [Concomitant]
     Dosage: 2 CYCLES RECEIVED
     Dates: start: 19991208, end: 20000106
  21. MITOMYCIN-C BULK POWDER [Concomitant]
     Dosage: 2 CYCLES RECEIVED
     Dates: start: 19991208, end: 20000106
  22. VINORELBINE TARTRATE [Concomitant]
     Dosage: 2 CYCLES RECEIVED
     Dates: start: 19991208, end: 20000106
  23. UFT [Concomitant]
     Dates: start: 20000517, end: 20021007
  24. UFT [Concomitant]
     Dates: start: 20030319, end: 20041017
  25. KRESTIN [Concomitant]
     Indication: IMMUNE SYSTEM DISORDER
     Dates: start: 20000517, end: 20041017
  26. PACLITAXEL [Concomitant]
     Dosage: 7 CYCLES RECEIVED
     Dates: start: 20021021, end: 20030219
  27. CARBOPLATIN [Concomitant]
     Dosage: 7 CYCLES RECEIVED
     Dates: start: 20021021, end: 20030219

REACTIONS (6)
  - ANAEMIA [None]
  - DIARRHOEA [None]
  - EATING DISORDER [None]
  - GASTRIC ULCER [None]
  - LIVER DISORDER [None]
  - RASH [None]
